FAERS Safety Report 9760744 (Version 1)
Quarter: 2013Q4

REPORT INFORMATION
  Report Type: Spontaneous
  Country: US (occurrence: US)
  Receive Date: 20131216
  Receipt Date: 20131216
  Transmission Date: 20140711
  Serious: No
  Sender: FDA-Public Use
  Company Number: US-BIOGENIDEC-2013BI101441

PATIENT
  Sex: Female

DRUGS (6)
  1. TECFIDERA [Suspect]
     Indication: MULTIPLE SCLEROSIS
     Route: 048
     Dates: start: 201307
  2. TOPIRAMATE [Concomitant]
  3. ACETAZOLAMIDE [Concomitant]
  4. OXYBUTYNIN [Concomitant]
  5. PROZAC [Concomitant]
  6. SM SUPER B COMPLEX-C [Concomitant]

REACTIONS (5)
  - Headache [Unknown]
  - Neck pain [Unknown]
  - Back pain [Unknown]
  - Fatigue [Unknown]
  - Tooth fracture [Unknown]
